FAERS Safety Report 13971514 (Version 4)
Quarter: 2018Q2

REPORT INFORMATION
  Report Type: Spontaneous
  Country: US (occurrence: US)
  Receive Date: 20170914
  Receipt Date: 20180428
  Transmission Date: 20180711
  Serious: Yes (Hospitalization)
  Sender: FDA-Public Use
  Company Number: US-VIFOR (INTERNATIONAL) INC.-VIT-2017-09366

PATIENT
  Age: 77 Year
  Sex: Female
  Weight: 98.52 kg

DRUGS (10)
  1. ACETYLSALICYLIC ACID [Concomitant]
     Active Substance: ASPIRIN
  2. AMLODIPINE BESILATE [Concomitant]
     Active Substance: AMLODIPINE BESYLATE
  3. SODIUM BICARBONATE. [Concomitant]
     Active Substance: SODIUM BICARBONATE
  4. VELTASSA [Suspect]
     Active Substance: PATIROMER
     Indication: HYPERKALAEMIA
     Route: 048
     Dates: start: 20160218
  5. VELTASSA [Suspect]
     Active Substance: PATIROMER
     Route: 048
     Dates: start: 2017, end: 2018
  6. CARVEDILOL. [Concomitant]
     Active Substance: CARVEDILOL
  7. PARACETAMOL~~HYDROCODONE [Concomitant]
  8. CEFALEXIN [Concomitant]
     Active Substance: CEPHALEXIN
  9. ALLOPURINOL. [Concomitant]
     Active Substance: ALLOPURINOL
  10. FUROSEMIDE. [Concomitant]
     Active Substance: FUROSEMIDE

REACTIONS (5)
  - Treatment noncompliance [Unknown]
  - Limb discomfort [Unknown]
  - Hospitalisation [Unknown]
  - Blood potassium increased [Recovered/Resolved]
  - Thrombosis [Recovered/Resolved]

NARRATIVE: CASE EVENT DATE: 2017
